FAERS Safety Report 8593169-9 (Version None)
Quarter: 2012Q3

REPORT INFORMATION
  Report Type: 
  Country: None (occurrence: None)
  Receive Date: 20120814
  Receipt Date: 20120724
  Transmission Date: 20120928
  Serious: No
  Sender: FDA-Public Use
  Company Number: US-BAYER-2012-074885

PATIENT
  Age: 23 Year
  Sex: Female
  Weight: 68 kg

DRUGS (2)
  1. ALEVE (CAPLET) [Suspect]
     Indication: TENDONITIS
     Dosage: 2 DF, PRN
     Route: 048
     Dates: end: 20120724
  2. MELATONIN [Concomitant]

REACTIONS (5)
  - DIZZINESS [None]
  - MALAISE [None]
  - NERVOUSNESS [None]
  - HYPOAESTHESIA [None]
  - HEART RATE INCREASED [None]
